FAERS Safety Report 10554138 (Version 2)
Quarter: 2014Q4

REPORT INFORMATION
  Report Type: Spontaneous
  Country: US (occurrence: US)
  Receive Date: 20141030
  Receipt Date: 20141030
  Transmission Date: 20150529
  Serious: Yes (Hospitalization, Other)
  Sender: FDA-Public Use
  Company Number: US-GLAXOSMITHKLINE-A0729506A

PATIENT
  Age: 61 Year
  Sex: Male

DRUGS (15)
  1. GLIPIZIDE. [Concomitant]
     Active Substance: GLIPIZIDE
     Indication: TYPE 2 DIABETES MELLITUS
     Dates: start: 2001, end: 2003
  2. LANTUS [Concomitant]
     Active Substance: INSULIN GLARGINE
  3. PROZAC [Concomitant]
     Active Substance: FLUOXETINE HYDROCHLORIDE
  4. REGULAR INSULIN [Concomitant]
     Active Substance: INSULIN NOS
     Indication: TYPE 2 DIABETES MELLITUS
     Dates: start: 2004, end: 2007
  5. AVANDARYL [Suspect]
     Active Substance: GLIMEPIRIDE\ROSIGLITAZONE MALEATE
     Indication: TYPE 2 DIABETES MELLITUS
     Route: 048
     Dates: start: 200604
  6. TROGLITAZONE [Concomitant]
     Active Substance: TROGLITAZONE
  7. CPAP [Concomitant]
     Active Substance: DEVICE
  8. GLARGINE [Concomitant]
     Indication: TYPE 2 DIABETES MELLITUS
     Dates: start: 2004, end: 2007
  9. GLUCOTROL [Concomitant]
     Active Substance: GLIPIZIDE
  10. AVANDIA [Suspect]
     Active Substance: ROSIGLITAZONE MALEATE
     Indication: TYPE 2 DIABETES MELLITUS
     Dosage: 8 MG, UNK
     Route: 048
     Dates: start: 20010307, end: 200511
  11. SYNTHROID [Concomitant]
     Active Substance: LEVOTHYROXINE SODIUM
     Indication: CARDIAC FAILURE CONGESTIVE
  12. HUMALOG [Concomitant]
     Active Substance: INSULIN LISPRO
     Indication: TYPE 2 DIABETES MELLITUS
     Dates: start: 2000
  13. BYETTA [Concomitant]
     Active Substance: EXENATIDE
     Dates: start: 2004, end: 2006
  14. COMBIVENT [Concomitant]
     Active Substance: ALBUTEROL SULFATE\IPRATROPIUM BROMIDE
  15. LIPITOR [Concomitant]
     Active Substance: ATORVASTATIN CALCIUM

REACTIONS (5)
  - Coronary artery disease [Unknown]
  - Pulmonary hypertension [Unknown]
  - Pleural effusion [Unknown]
  - Cardiac failure congestive [Not Recovered/Not Resolved]
  - Systolic dysfunction [Unknown]

NARRATIVE: CASE EVENT DATE: 20051118
